FAERS Safety Report 5388798-X (Version None)
Quarter: 2007Q3

REPORT INFORMATION
  Report Type: 
  Country: None (occurrence: None)
  Receive Date: 20070712
  Receipt Date: 20070626
  Transmission Date: 20080115
  Serious: Yes (Other)
  Sender: FDA-Public Use
  Company Number: DSA_30190_2007

PATIENT
  Age: 69 Year
  Sex: Female

DRUGS (8)
  1. VASOTEC [Suspect]
     Dosage: ORAL
     Route: 048
     Dates: end: 20050201
  2. VASOTEC [Suspect]
     Dosage: ORAL
     Route: 048
  3. VICKS DAYQUIL /01056501/ [Concomitant]
  4. VICKS NYQUIL [Concomitant]
  5. PLAVIX [Concomitant]
  6. PRAVACHOL [Concomitant]
  7. AMILORIDE HYDROCHLORIDE [Concomitant]
  8. ASPIRIN [Concomitant]

REACTIONS (6)
  - ANGIOEDEMA [None]
  - ELECTROCARDIOGRAM T WAVE INVERSION [None]
  - HYPERSENSITIVITY [None]
  - HYPERTENSION [None]
  - SPEECH DISORDER [None]
  - UPPER RESPIRATORY TRACT INFECTION [None]
